FAERS Safety Report 24130185 (Version 1)
Quarter: 2024Q3

REPORT INFORMATION
  Report Type: Spontaneous
  Country: IL (occurrence: IL)
  Receive Date: 20240724
  Receipt Date: 20240724
  Transmission Date: 20241017
  Serious: Yes (Death, Hospitalization, Other)
  Sender: SANDOZ
  Company Number: IL-SANDOZ-SDZ2024IL067457

PATIENT
  Sex: Male

DRUGS (1)
  1. METHOTREXATE [Suspect]
     Active Substance: METHOTREXATE
     Indication: Product used for unknown indication
     Dosage: 7.5 MG, QD
     Route: 065

REACTIONS (5)
  - Blood pressure decreased [Fatal]
  - Oxygen saturation decreased [Fatal]
  - Drug level abnormal [Fatal]
  - Condition aggravated [Fatal]
  - Inappropriate schedule of product administration [Unknown]
